FAERS Safety Report 13400569 (Version 1)
Quarter: 2017Q2

REPORT INFORMATION
  Report Type: Spontaneous
  Country: FR (occurrence: FR)
  Receive Date: 20170404
  Receipt Date: 20170404
  Transmission Date: 20170830
  Serious: Yes (Hospitalization, Other)
  Sender: FDA-Public Use
  Company Number: FR-LUPIN PHARMACEUTICALS INC.-2017-01571

PATIENT
  Sex: Female

DRUGS (1)
  1. LORAZEPAM. [Suspect]
     Active Substance: LORAZEPAM
     Indication: PRODUCT USED FOR UNKNOWN INDICATION
     Dosage: UNK UNK, SINGLE

REACTIONS (4)
  - Toxicity to various agents [Recovered/Resolved]
  - Altered state of consciousness [Recovered/Resolved]
  - Respiratory disorder [Unknown]
  - Accidental overdose [Unknown]
